FAERS Safety Report 8350790-0 (Version None)
Quarter: 2012Q2

REPORT INFORMATION
  Report Type: 
  Country: None (occurrence: None)
  Receive Date: 20120510
  Receipt Date: 20120328
  Transmission Date: 20120825
  Serious: Yes (Death)
  Sender: FDA-Public Use
  Company Number: FR-GLAXOSMITHKLINE-B0800522A

PATIENT
  Age: 64 Year
  Sex: Male

DRUGS (1)
  1. ALKERAN [Suspect]
     Indication: MULTIPLE MYELOMA
     Route: 048
     Dates: start: 20110318

REACTIONS (4)
  - MEDICATION ERROR [None]
  - VOMITING [None]
  - ACUTE RESPIRATORY FAILURE [None]
  - AGRANULOCYTOSIS [None]
